FAERS Safety Report 10153519 (Version 2)
Quarter: 2014Q3

REPORT INFORMATION
  Report Type: Spontaneous
  Country: DK (occurrence: DK)
  Receive Date: 20140505
  Receipt Date: 20140806
  Transmission Date: 20150326
  Serious: Yes (Hospitalization)
  Sender: FDA-Public Use
  Company Number: DK-ABBVIE-14P-044-1230944-00

PATIENT
  Age: 44 Year
  Sex: Female
  Weight: 82 kg

DRUGS (5)
  1. CENTYL MITE [Concomitant]
     Indication: PRODUCT USED FOR UNKNOWN INDICATION
  2. PRIORIN [Concomitant]
     Indication: ALOPECIA
  3. AMLODIPINE [Concomitant]
     Active Substance: AMLODIPINE BESYLATE
     Indication: PRODUCT USED FOR UNKNOWN INDICATION
  4. VITAMIN D [Concomitant]
     Active Substance: CHOLECALCIFEROL
     Indication: PRODUCT USED FOR UNKNOWN INDICATION
  5. HUMIRA [Suspect]
     Active Substance: ADALIMUMAB
     Indication: PSORIASIS
     Dosage: 08APR2014: 2 X 40 MG. ON 15APR2014: 40 MG.
     Dates: start: 201403, end: 20140415

REACTIONS (7)
  - Cough [Recovered/Resolved]
  - Urticaria [Recovered/Resolved]
  - Headache [Unknown]
  - Anaphylactic reaction [Recovered/Resolved]
  - Dizziness [Not Recovered/Not Resolved]
  - Tremor [Unknown]
  - Skin burning sensation [Not Recovered/Not Resolved]

NARRATIVE: CASE EVENT DATE: 201404
